FAERS Safety Report 9542893 (Version 1)
Quarter: 2013Q3

REPORT INFORMATION
  Report Type: Spontaneous
  Country: US (occurrence: US)
  Receive Date: 20130923
  Receipt Date: 20130923
  Transmission Date: 20140515
  Serious: Yes (Hospitalization)
  Sender: FDA-Public Use
  Company Number: US-BAYER-2013-114260

PATIENT
  Age: 38 Year
  Sex: Female

DRUGS (3)
  1. OCELLA [Suspect]
  2. CEFTIN [Concomitant]
  3. AZITHROMYCIN [Concomitant]

REACTIONS (1)
  - Pulmonary embolism [None]
